FAERS Safety Report 7282018-7 (Version None)
Quarter: 2011Q1

REPORT INFORMATION
  Report Type: 
  Country: None (occurrence: None)
  Receive Date: 20110208
  Receipt Date: 20110119
  Transmission Date: 20110831
  Serious: Yes (Other)
  Sender: FDA-Public Use
  Company Number: PHHY2011GB04431

PATIENT
  Age: 51 Year
  Sex: Female

DRUGS (6)
  1. ZOPICLONE [Concomitant]
     Indication: INSOMNIA
     Dosage: 7.5 MG, QD
     Route: 048
     Dates: start: 20101208
  2. METRONIDAZOLE [Suspect]
     Indication: TOOTH ABSCESS
     Dosage: 40 MG, TID
     Route: 048
     Dates: start: 20101022, end: 20101230
  3. CITALOPRAM [Concomitant]
     Indication: DEPRESSION
  4. CITALOPRAM [Concomitant]
     Indication: BIPOLAR DISORDER
     Dosage: 10 MG, QD
     Route: 048
     Dates: start: 20101222
  5. METRONIDAZOLE [Concomitant]
     Indication: DENTAL CARE
     Dosage: 400 MG, TID
     Route: 048
     Dates: start: 20101222
  6. CORSODYL [Concomitant]

REACTIONS (3)
  - ANXIETY [None]
  - PSYCHOTIC DISORDER [None]
  - INSOMNIA [None]
